FAERS Safety Report 12601268 (Version 1)
Quarter: 2016Q3

REPORT INFORMATION
  Report Type: Spontaneous
  Country: US (occurrence: US)
  Receive Date: 20160728
  Receipt Date: 20160728
  Transmission Date: 20161109
  Serious: Yes (Hospitalization)
  Sender: FDA-Public Use
  Company Number: US-ASTRAZENECA-2016SE80023

PATIENT
  Age: 61 Year
  Sex: Female
  Weight: 95.7 kg

DRUGS (5)
  1. RHINOCORT AQUA [Suspect]
     Active Substance: BUDESONIDE
     Indication: SINUSITIS
     Dosage: TWO SPRAYS EACH NOSTRIL DAILY AS NEEDED
     Route: 045
     Dates: start: 2010
  2. RHINOCORT AQUA [Suspect]
     Active Substance: BUDESONIDE
     Indication: PULMONARY CONGESTION
     Dosage: TWO SPRAYS EACH NOSTRIL DAILY AS NEEDED
     Route: 045
     Dates: start: 2010
  3. SYNTHROID [Concomitant]
     Active Substance: LEVOTHYROXINE SODIUM
     Indication: HYPOTHYROIDISM
  4. RHINOCORT AQUA [Suspect]
     Active Substance: BUDESONIDE
     Indication: MULTIPLE ALLERGIES
     Dosage: TWO SPRAYS EACH NOSTRIL DAILY AS NEEDED
     Route: 045
     Dates: start: 2010
  5. SYMBICORT [Suspect]
     Active Substance: BUDESONIDE\FORMOTEROL FUMARATE DIHYDRATE
     Indication: LUNG DISORDER
     Dosage: TOOK A TOTAL OF 4 PUFFS
     Route: 055
     Dates: start: 2011

REACTIONS (8)
  - Off label use [Unknown]
  - Pneumonia [Recovered/Resolved]
  - Urticaria [Recovered/Resolved]
  - Drug hypersensitivity [Unknown]
  - Erythema [Recovered/Resolved]
  - Product use issue [Unknown]
  - Wrong technique in product usage process [Unknown]
  - Pruritus [Recovered/Resolved]

NARRATIVE: CASE EVENT DATE: 2011
